FAERS Safety Report 8635149 (Version 3)
Quarter: 2013Q3

REPORT INFORMATION
  Report Type: Spontaneous
  Country: US (occurrence: US)
  Receive Date: 20120626
  Receipt Date: 20130906
  Transmission Date: 20140515
  Serious: Yes (Hospitalization, Other)
  Sender: FDA-Public Use
  Company Number: US-CELGENEUS-163-21880-12063208

PATIENT
  Sex: Male

DRUGS (1)
  1. REVLIMID [Suspect]
     Indication: MYELODYSPLASTIC SYNDROME
     Dosage: 5 MILLIGRAM
     Route: 048
     Dates: start: 201202

REACTIONS (6)
  - Lower limb fracture [Unknown]
  - Accident [Unknown]
  - White blood cell count decreased [Unknown]
  - Cataract [Unknown]
  - Hearing impaired [Unknown]
  - Visual acuity reduced [Unknown]
